FAERS Safety Report 18643052 (Version 3)
Quarter: 2021Q1

REPORT INFORMATION
  Report Type: Spontaneous
  Country: US (occurrence: US)
  Receive Date: 20201221
  Receipt Date: 20210305
  Transmission Date: 20210419
  Serious: No
  Sender: FDA-Public Use
  Company Number: US-SA-2020SA362243

PATIENT
  Age: 70 Year
  Sex: Male

DRUGS (3)
  1. ADMELOG [Suspect]
     Active Substance: INSULIN LISPRO
     Dosage: 8 IU
     Route: 065
  2. ADMELOG [Suspect]
     Active Substance: INSULIN LISPRO
     Dosage: 1 TO 2 IU
     Route: 065
  3. HUMALOG [Concomitant]
     Active Substance: INSULIN LISPRO
     Dosage: UNK
     Route: 065

REACTIONS (3)
  - Needle issue [Unknown]
  - Incorrect dose administered by device [Unknown]
  - Blood glucose increased [Unknown]

NARRATIVE: CASE EVENT DATE: 20201215
